FAERS Safety Report 8774852 (Version 1)
Quarter: 2012Q4

REPORT INFORMATION
  Report Type: 
  Country: US (occurrence: US)
  Receive Date: 20120910
  Receipt Date: 20120910
  Transmission Date: 20130627
  Serious: No
  Sender: FDA-Public Use
  Company Number: US-009507513-1209USA001816

PATIENT

DRUGS (3)
  1. VICTRELIS [Suspect]
     Indication: HEPATITIS C
     Dosage: 800 mg, tid
     Route: 048
  2. PEGINTRON [Suspect]
  3. REBETOL [Suspect]

REACTIONS (2)
  - Viral load increased [Not Recovered/Not Resolved]
  - Drug effect decreased [Unknown]
